FAERS Safety Report 5718224-X (Version None)
Quarter: 2008Q2

REPORT INFORMATION
  Report Type: 
  Country: None (occurrence: None)
  Receive Date: 20080425
  Receipt Date: 20080410
  Transmission Date: 20081010
  Serious: Yes (Life-Threatening, Hospitalization, Disabling)
  Sender: FDA-Public Use
  Company Number: US-ROCHE-560396

PATIENT
  Sex: Male

DRUGS (5)
  1. CAPECITABINE [Suspect]
     Route: 065
  2. BEVACIZUMAB [Suspect]
     Dosage: FREQUENCY REPORTED AS Q 2 WEEKS X 1 YEAR.
     Route: 042
     Dates: start: 20061109
  3. ELOXATIN [Suspect]
     Dosage: GIVEN ON DAY ONE OF EVERY TWO WEEK CYCLE FOR 12 CYCLES.
     Route: 042
     Dates: start: 20061109
  4. LEUCOVORIN CALCIUM [Suspect]
     Dosage: GIVEN ON DAY ONE OF EVERY TWO WEEK CYCLE FOR 12 CYCLES.
     Route: 042
     Dates: start: 20061109
  5. FLUOROURACIL [Suspect]
     Dosage: GIVEN AS ON DAY 1 OF EVERY 2 WEEK CYCLE. GIVEN AS CONTINOUS IV INFUSION OVER 46 H ON DAYS 1 AND 2.
     Route: 042
     Dates: start: 20061109

REACTIONS (18)
  - ASTHENIA [None]
  - COLONIC OBSTRUCTION [None]
  - DEHYDRATION [None]
  - DIARRHOEA [None]
  - ELECTROLYTE IMBALANCE [None]
  - FATIGUE [None]
  - GASTROENTERITIS [None]
  - HYPOKALAEMIA [None]
  - HYPONATRAEMIA [None]
  - HYPOPHOSPHATAEMIA [None]
  - ILEUS [None]
  - NAUSEA [None]
  - NEUTROPENIC INFECTION [None]
  - NEUTROPHIL COUNT DECREASED [None]
  - PLEURAL EFFUSION [None]
  - PNEUMONIA [None]
  - STAPHYLOCOCCAL INFECTION [None]
  - VOMITING [None]
